FAERS Safety Report 15917695 (Version 1)
Quarter: 2019Q1

REPORT INFORMATION
  Report Type: Spontaneous
  Country: US (occurrence: US)
  Receive Date: 20190115
  Receipt Date: 20190115
  Transmission Date: 20190417
  Serious: No
  Sender: FDA-Public Use
  Company Number: None

PATIENT
  Age: 15 Year
  Sex: Male

DRUGS (8)
  1. FLOVENT [Concomitant]
     Active Substance: FLUTICASONE PROPIONATE
  2. ZYTIGA [Suspect]
     Active Substance: ABIRATERONE ACETATE
     Indication: PROSTATE CANCER
     Route: 048
     Dates: start: 20170825
  3. FISH OIL [Concomitant]
     Active Substance: FISH OIL
  4. ATORVASTATIN [Concomitant]
     Active Substance: ATORVASTATIN
  5. COQ10 [Concomitant]
     Active Substance: UBIDECARENONE
  6. MULTI-VITAMINS [Concomitant]
  7. ACESULFAME [Concomitant]
     Active Substance: ACESULFAME POTASSIUM
  8. VALIUM [Concomitant]
     Active Substance: DIAZEPAM

REACTIONS (2)
  - Asthenia [None]
  - Fatigue [None]
